FAERS Safety Report 12507892 (Version 1)
Quarter: 2016Q2

REPORT INFORMATION
  Report Type: Spontaneous
  Country: US (occurrence: None)
  Receive Date: 20160628
  Receipt Date: 20160628
  Transmission Date: 20160815
  Serious: Yes (Disabling)
  Sender: FDA-Public Use
  Company Number: None

PATIENT
  Age: 32 Year
  Sex: Female
  Weight: 108.86 kg

DRUGS (2)
  1. DIVALPROEX SOD ER 250MG TAB, 250 MG MYLAN [Suspect]
     Active Substance: DIVALPROEX SODIUM
     Indication: BIPOLAR DISORDER
     Dosage: 90 TABLET(S) THREE TIMES A DAY TAKEN BY MOUTH
     Route: 048
     Dates: start: 20160416, end: 20160416
  2. DIVALPROEX SOD ER 250MG TAB, 250 MG MYLAN [Suspect]
     Active Substance: DIVALPROEX SODIUM
     Indication: MIGRAINE
     Dosage: 90 TABLET(S) THREE TIMES A DAY TAKEN BY MOUTH
     Route: 048
     Dates: start: 20160416, end: 20160416

REACTIONS (7)
  - Disturbance in attention [None]
  - Impaired work ability [None]
  - Anxiety [None]
  - Stress [None]
  - Bradyphrenia [None]
  - Product substitution issue [None]
  - Depression [None]

NARRATIVE: CASE EVENT DATE: 20160627
